FAERS Safety Report 21142232 (Version 2)
Quarter: 2022Q3

REPORT INFORMATION
  Report Type: Spontaneous
  Country: US (occurrence: US)
  Receive Date: 20220728
  Receipt Date: 20220810
  Transmission Date: 20221026
  Serious: Yes (Other)
  Sender: FDA-Public Use
  Company Number: US-TEVA-2022-US-2057839

PATIENT
  Age: 24 Year
  Sex: Female

DRUGS (2)
  1. TESTOSTERONE [Suspect]
     Active Substance: TESTOSTERONE
     Indication: Transgender hormonal therapy
     Dosage: 100 MG BIWEEKLY
     Route: 030
  2. TESTOSTERONE [Suspect]
     Active Substance: TESTOSTERONE
     Dosage: 150 MG BIWEEKLY
     Route: 030

REACTIONS (2)
  - Idiopathic intracranial hypertension [Recovered/Resolved]
  - Disease recurrence [Recovered/Resolved]
